FAERS Safety Report 8769125 (Version 1)
Quarter: 2012Q4

REPORT INFORMATION
  Report Type: 
  Country: BR (occurrence: BR)
  Receive Date: 20120905
  Receipt Date: 20120905
  Transmission Date: 20130627
  Serious: Yes (Hospitalization)
  Sender: FDA-Public Use
  Company Number: BR-ELI_LILLY_AND_COMPANY-BR201209000287

PATIENT
  Sex: Female

DRUGS (6)
  1. HUMULIN NPH [Suspect]
     Indication: TYPE 2 DIABETES MELLITUS
     Dosage: UNK, unknown
     Route: 058
     Dates: start: 1986
  2. HUMULIN REGULAR [Suspect]
     Indication: TYPE 2 DIABETES MELLITUS
     Dosage: UNK, unknown
     Route: 058
     Dates: start: 201205
  3. DIOVAN [Concomitant]
     Indication: HYPERTENSION
     Dosage: UNK, each morning
     Route: 065
  4. BUFFERIN CARDIO [Concomitant]
     Indication: HYPERTENSION
     Dosage: UNK, other
     Route: 065
  5. PANTOPRAZOLE [Concomitant]
     Indication: GASTRITIS
     Dosage: UNK, qd
     Route: 065
  6. DAFLON [Concomitant]
     Indication: VARICOSE VEIN
     Dosage: UNK, unknown
     Route: 065

REACTIONS (4)
  - Breast cancer [Recovered/Resolved]
  - Uterine cancer [Recovered/Resolved]
  - Injection site haematoma [Recovered/Resolved]
  - Injection site induration [Unknown]
